FAERS Safety Report 19890170 (Version 6)
Quarter: 2021Q4

REPORT INFORMATION
  Report Type: Report from Study
  Country: MY (occurrence: MY)
  Receive Date: 20210927
  Receipt Date: 20211222
  Transmission Date: 20220303
  Serious: Yes (Hospitalization)
  Sender: FDA-Public Use
  Company Number: MY-KARYOPHARM-2021KPT001224

PATIENT
  Age: 54 Year
  Sex: Male
  Weight: 67.5 kg

DRUGS (7)
  1. SELINEXOR [Suspect]
     Active Substance: SELINEXOR
     Indication: Plasma cell myeloma
     Dosage: 80 MG, 2X/WEEK
     Route: 048
     Dates: start: 20210915, end: 20210917
  2. SELINEXOR [Suspect]
     Active Substance: SELINEXOR
     Dosage: 80 MG, 2X/WEEK
     Route: 048
     Dates: start: 20210922, end: 20211013
  3. SELINEXOR [Suspect]
     Active Substance: SELINEXOR
     Dosage: 100 MG, WEEKLY
     Route: 048
     Dates: start: 20211020, end: 20211103
  4. SELINEXOR [Suspect]
     Active Substance: SELINEXOR
     Dosage: 80 MG, WEEKLY
     Route: 048
     Dates: start: 2021
  5. TAMSULOSIN [Concomitant]
     Active Substance: TAMSULOSIN
     Indication: Dysuria
     Dosage: 400 UG, QD
     Route: 065
     Dates: start: 20210806
  6. TESTOSTERONE [Concomitant]
     Active Substance: TESTOSTERONE
     Indication: Hypogonadism
     Dosage: 1 DOSAGE FORM, QD
     Route: 065
     Dates: start: 20210806
  7. DEXAMETHASONE [Concomitant]
     Active Substance: DEXAMETHASONE
     Indication: Plasma cell myeloma
     Dosage: 40 MG, WEEKLY
     Route: 065
     Dates: start: 20210805

REACTIONS (3)
  - Thrombocytopenia [Not Recovered/Not Resolved]
  - Escherichia sepsis [Recovered/Resolved]
  - Haemorrhage subcutaneous [Recovered/Resolved]

NARRATIVE: CASE EVENT DATE: 20210917
